FAERS Safety Report 5121200-1 (Version None)
Quarter: 2006Q4

REPORT INFORMATION
  Report Type: 
  Country: None (occurrence: None)
  Receive Date: 20061002
  Receipt Date: 20060920
  Transmission Date: 20070319
  Serious: Yes (Death)
  Sender: FDA-Public Use
  Company Number: 008674

PATIENT
  Age: 79 Year
  Sex: Male

DRUGS (1)
  1. CLARAVIS [Suspect]
     Indication: FOLLICULITIS
     Dosage: 20 MG, ORAL
     Route: 048
     Dates: start: 20040201, end: 20060901

REACTIONS (1)
  - LEUKAEMIA [None]
